FAERS Safety Report 6716553-4 (Version None)
Quarter: 2010Q2

REPORT INFORMATION
  Report Type: 
  Country: None (occurrence: None)
  Receive Date: 20100507
  Receipt Date: 20100426
  Transmission Date: 20101027
  Serious: Yes (Other)
  Sender: FDA-Public Use
  Company Number: US-ELI_LILLY_AND_COMPANY-US201003006677

PATIENT
  Age: 60 Year
  Sex: Male

DRUGS (15)
  1. CYMBALTA [Suspect]
     Indication: DEPRESSION
     Dosage: 20 MG, UNK
     Dates: start: 20050502, end: 20050606
  2. CYMBALTA [Suspect]
     Dosage: 30 MG, UNK
     Dates: start: 20050606, end: 20051017
  3. CYMBALTA [Suspect]
     Dosage: 20 UNK, UNK
     Dates: start: 20051017, end: 20070306
  4. CYMBALTA [Suspect]
     Dosage: 30 MG, UNK
     Dates: start: 20070306, end: 20070601
  5. CYMBALTA [Suspect]
     Dosage: 40 MG, UNK
     Dates: start: 20070601, end: 20070716
  6. CYMBALTA [Suspect]
     Dosage: 30 MG, UNK
     Dates: start: 20070716, end: 20071030
  7. CYMBALTA [Suspect]
     Dosage: 20 MG, UNK
     Dates: start: 20071204, end: 20090203
  8. CYMBALTA [Suspect]
     Dosage: 30 MG, UNK
     Dates: start: 20090203, end: 20090223
  9. CYMBALTA [Suspect]
     Dosage: 40 MG, UNK
     Dates: start: 20090223, end: 20090803
  10. CYMBALTA [Suspect]
     Dosage: 50 MG, UNK
     Dates: start: 20090803, end: 20091102
  11. CYMBALTA [Suspect]
     Dosage: 40 MG, UNK
     Dates: start: 20091102, end: 20100106
  12. CYMBALTA [Suspect]
     Dosage: 30 MG, UNK
     Dates: start: 20100106, end: 20100210
  13. CYMBALTA [Suspect]
     Dosage: 20 MG, UNK
     Dates: start: 20050502, end: 20100301
  14. TOPAMAX [Concomitant]
  15. ATIVAN [Concomitant]

REACTIONS (3)
  - BLINDNESS [None]
  - CATARACT [None]
  - RETINAL DETACHMENT [None]
